FAERS Safety Report 9351882 (Version 1)
Quarter: 2013Q2

REPORT INFORMATION
  Report Type: Spontaneous
  Country: DE (occurrence: None)
  Receive Date: 20130612
  Receipt Date: 20130612
  Transmission Date: 20140414
  Serious: Yes (Other)
  Sender: FDA-Public Use
  Company Number: GER/GER/13/0029962

PATIENT
  Age: 36 Year
  Sex: Female
  Weight: 73 kg

DRUGS (3)
  1. LAMOTRIGINE (LAMOTRIGINE) [Suspect]
     Indication: EPILEPSY
     Dosage: 1200 MG, FROM GESTATIONAL WEEK 6.0, ORAL
     Route: 048
     Dates: start: 20070403, end: 20080102
  2. FRISIUM [Suspect]
     Indication: PRODUCT USED FOR UNKNOWN INDICATION
     Dosage: 10 MG, FOR 6- 38 GESTATIONAL WEEK, ORAL
     Route: 048
  3. FOLSAURE (FOLIC ACID) [Concomitant]

REACTIONS (3)
  - Maternal exposure during pregnancy [None]
  - Rhinitis [None]
  - Caesarean section [None]
